FAERS Safety Report 15618571 (Version 2)
Quarter: 2019Q1

REPORT INFORMATION
  Report Type: Spontaneous
  Country: US (occurrence: US)
  Receive Date: 20181114
  Receipt Date: 20190130
  Transmission Date: 20190417
  Serious: No
  Sender: FDA-Public Use
  Company Number: US-PFIZER INC-2018368639

PATIENT
  Age: 68 Year
  Sex: Female
  Weight: 104.3 kg

DRUGS (1)
  1. GABAPENTIN. [Suspect]
     Active Substance: GABAPENTIN
     Indication: PAIN IN EXTREMITY
     Dosage: 100 MG, UNK
     Dates: start: 201802

REACTIONS (3)
  - Insomnia [Unknown]
  - Impaired work ability [Unknown]
  - Drug ineffective for unapproved indication [Unknown]
